FAERS Safety Report 7268952-2 (Version None)
Quarter: 2011Q1

REPORT INFORMATION
  Report Type: 
  Country: None (occurrence: None)
  Receive Date: 20110201
  Receipt Date: 20110127
  Transmission Date: 20110831
  Serious: Yes (Other)
  Sender: FDA-Public Use
  Company Number: FR-PFIZER INC-2010170152

PATIENT
  Age: 89 Year
  Sex: Female
  Weight: 52 kg

DRUGS (7)
  1. EZETROL [Suspect]
     Dosage: UNK
     Dates: start: 20100101, end: 20101201
  2. PLAVIX [Concomitant]
     Indication: INFARCTION
     Dosage: 75 MG, 1X/DAY
     Route: 048
     Dates: start: 20071001
  3. TENORMIN [Concomitant]
     Indication: INFARCTION
     Dosage: 50 MG, 1X/DAY
     Route: 048
     Dates: start: 20071001
  4. TAHOR [Suspect]
     Indication: INFARCTION
     Dosage: 10 MG, 1X/DAY
     Route: 048
     Dates: start: 20071001
  5. COVERSYL [Concomitant]
     Dosage: UNKNOWN
  6. BIPRETERAX [Concomitant]
     Indication: HYPERTENSION
     Dosage: 1 DF, 1X/DAY
     Route: 048
     Dates: start: 20071001
  7. KARDEGIC [Concomitant]
     Indication: INFARCTION
     Dosage: 75 MG, 1X/DAY
     Route: 048
     Dates: start: 20071001

REACTIONS (3)
  - MYALGIA [None]
  - BLOOD CREATINE PHOSPHOKINASE INCREASED [None]
  - PANCREATITIS [None]
